FAERS Safety Report 4559967-3 (Version None)
Quarter: 2005Q1

REPORT INFORMATION
  Report Type: 
  Country: None (occurrence: None)
  Receive Date: 20050120
  Receipt Date: 20050120
  Transmission Date: 20050727
  Serious: Yes (Other)
  Sender: FDA-Public Use
  Company Number: None

PATIENT
  Age: 68 Year
  Sex: Female
  Weight: 62.5964 kg

DRUGS (1)
  1. NITROFURANTOIN [Suspect]
     Indication: CYSTITIS NONINFECTIVE
     Dosage: 50 MG ONE BID

REACTIONS (3)
  - DRUG INEFFECTIVE [None]
  - PHARMACEUTICAL PRODUCT COMPLAINT [None]
  - POLLAKIURIA [None]
